FAERS Safety Report 9511843 (Version 1)
Quarter: 2013Q3

REPORT INFORMATION
  Report Type: Report from Study
  Country: JP (occurrence: JP)
  Receive Date: 20130910
  Receipt Date: 20130910
  Transmission Date: 20140515
  Serious: Yes (Other)
  Sender: FDA-Public Use
  Company Number: JP-VERTEX PHARMACEUTICALS INC-2013-009373

PATIENT
  Age: 66 Year
  Sex: Male

DRUGS (13)
  1. VX-950 (TELAPREVIR) [Suspect]
     Indication: CHRONIC HEPATITIS C
     Dosage: 2250 MG, QD
     Route: 048
     Dates: start: 20120412, end: 20120605
  2. VX-950 (TELAPREVIR) [Suspect]
     Dosage: 1500 MG, QD
     Route: 048
     Dates: start: 20120606, end: 20120704
  3. RIBAVIRIN [Suspect]
     Indication: CHRONIC HEPATITIS C
     Dosage: 800 MG, QD
     Route: 048
     Dates: start: 20120412, end: 20120501
  4. RIBAVIRIN [Suspect]
     Dosage: 400 MG, QD
     Route: 048
     Dates: start: 20120502, end: 20120509
  5. RIBAVIRIN [Suspect]
     Dosage: 200 MG, QD
     Route: 048
     Dates: start: 20120510, end: 20120704
  6. RIBAVIRIN [Suspect]
     Dosage: 400 MG, QD
     Route: 048
     Dates: start: 20120705, end: 20120926
  7. PEGINTERFERON ALFA-2B [Suspect]
     Indication: CHRONIC HEPATITIS C
     Dosage: 1.5 ?G/KG, QW
     Route: 058
     Dates: start: 20120412, end: 20120920
  8. EPADEL [Concomitant]
     Dosage: 1800 MG, QD
     Route: 048
     Dates: start: 20120412, end: 20120927
  9. NAUZELIN [Concomitant]
     Dosage: 30 MG, QD
     Route: 048
     Dates: start: 20120423, end: 20120927
  10. ZYLORIC [Concomitant]
     Dosage: 200 MG, QD
     Route: 048
     Dates: end: 20120511
  11. FEBURIC [Concomitant]
     Dosage: 60 MG, QD
     Route: 048
     Dates: start: 20120510, end: 20120718
  12. FEBURIC [Concomitant]
     Dosage: 40 MG, QD
     Route: 048
     Dates: start: 20120719, end: 20120725
  13. FEBURIC [Concomitant]
     Dosage: 20 MG, QD
     Route: 048
     Dates: start: 20120726, end: 20120927

REACTIONS (1)
  - White blood cell count decreased [Recovered/Resolved]
